FAERS Safety Report 17736141 (Version 1)
Quarter: 2020Q2

REPORT INFORMATION
  Report Type: Spontaneous
  Country: US (occurrence: US)
  Receive Date: 20200501
  Receipt Date: 20200501
  Transmission Date: 20200714
  Serious: No
  Sender: FDA-Public Use
  Company Number: US-CADILA HEALTHCARE LIMITED-US-ZYDUS-048492

PATIENT
  Age: 74 Year
  Sex: Female

DRUGS (1)
  1. AMITRIPTYLINE HYDROCHLORIDE. [Suspect]
     Active Substance: AMITRIPTYLINE HYDROCHLORIDE
     Indication: NEURALGIA
     Dosage: 10 MILLIGRAM,FREQUENCY :ONCE DAILY
     Route: 048
     Dates: start: 201909

REACTIONS (4)
  - Nightmare [Not Recovered/Not Resolved]
  - Feeling abnormal [Recovered/Resolved]
  - Product use in unapproved indication [Recovered/Resolved]
  - Insomnia [Recovered/Resolved]

NARRATIVE: CASE EVENT DATE: 201909
